FAERS Safety Report 4768093-X (Version None)
Quarter: 2005Q3

REPORT INFORMATION
  Report Type: 
  Country: None (occurrence: None)
  Receive Date: 20050908
  Receipt Date: 20050908
  Transmission Date: 20060218
  Serious: No
  Sender: FDA-Public Use
  Company Number: None

PATIENT
  Age: 45 Year
  Sex: Female

DRUGS (5)
  1. ZOLOFT [Suspect]
     Dosage: 50 MG BID
  2. PREVACID [Concomitant]
  3. PLAVIX [Concomitant]
  4. VITAMIN E SUPPLEMENTS [Concomitant]
  5. PROGESTERONE CREAM [Concomitant]

REACTIONS (3)
  - ANXIETY [None]
  - ASTHENIA [None]
  - BLINDNESS [None]
